FAERS Safety Report 22069187 (Version 1)
Quarter: 2023Q1

REPORT INFORMATION
  Report Type: Spontaneous
  Country: BE (occurrence: BE)
  Receive Date: 20230307
  Receipt Date: 20230307
  Transmission Date: 20230418
  Serious: Yes (Other)
  Sender: FDA-Public Use
  Company Number: BE-PFIZER INC-PV202300012151

PATIENT
  Age: 56 Year
  Sex: Female

DRUGS (10)
  1. RAPAMUNE [Suspect]
     Active Substance: SIROLIMUS
     Indication: Uveitis
     Dosage: 2 MG, DAILY FOR 4 MONTH
  2. METHYLPREDNISOLONE [Suspect]
     Active Substance: METHYLPREDNISOLONE
     Indication: Birdshot chorioretinopathy
     Dosage: 64 MG, 1X/DAY
  3. PREDNISOLONE [Suspect]
     Active Substance: PREDNISOLONE
     Indication: Uveitis
     Dosage: 16 MG, DAILY
  4. PREDNISOLONE [Suspect]
     Active Substance: PREDNISOLONE
     Dosage: 7.5 MG, DAILY
  5. HUMIRA [Suspect]
     Active Substance: ADALIMUMAB
     Indication: Birdshot chorioretinopathy
     Dosage: 80 MG,WEEK 0
     Route: 058
  6. HUMIRA [Suspect]
     Active Substance: ADALIMUMAB
     Dosage: 40 MG, WEEK 1
     Route: 058
  7. HUMIRA [Suspect]
     Active Substance: ADALIMUMAB
     Dosage: 40 MG, EVERY 2 WEEKS
     Route: 058
  8. NEORAL [Suspect]
     Active Substance: CYCLOSPORINE
     Indication: Birdshot chorioretinopathy
     Dosage: 200 MG, 1X/DAY
  9. IMURAN [Suspect]
     Active Substance: AZATHIOPRINE
     Indication: Birdshot chorioretinopathy
     Dosage: 150 MG, 1X/DAY
  10. MYCOPHENOLATE MOFETIL [Suspect]
     Active Substance: MYCOPHENOLATE MOFETIL
     Indication: Birdshot chorioretinopathy
     Dosage: 2 G, 1X/DAY

REACTIONS (2)
  - Condition aggravated [Unknown]
  - Non-small cell lung cancer metastatic [Unknown]
